FAERS Safety Report 4307257-6 (Version None)
Quarter: 2004Q1

REPORT INFORMATION
  Report Type: 
  Country: None (occurrence: None)
  Receive Date: 20040227
  Receipt Date: 20031209
  Transmission Date: 20041129
  Serious: Yes (Life-Threatening, Other)
  Sender: FDA-Public Use
  Company Number: WAES 0312BEL00034

PATIENT
  Age: 78 Year
  Sex: Female

DRUGS (2)
  1. ITRACONAZOLE [Concomitant]
     Indication: FUNGAL INFECTION
     Route: 048
  2. SINGULAIR [Suspect]
     Indication: ASTHMA
     Route: 048
     Dates: start: 20021201

REACTIONS (3)
  - ANGIONEUROTIC OEDEMA [None]
  - DYSPHAGIA [None]
  - OROPHARYNGEAL SWELLING [None]
